FAERS Safety Report 6034334-4 (Version None)
Quarter: 2009Q1

REPORT INFORMATION
  Report Type: 
  Country: None (occurrence: None)
  Receive Date: 20090112
  Receipt Date: 20090105
  Transmission Date: 20090719
  Serious: Yes (Hospitalization, Other)
  Sender: FDA-Public Use
  Company Number: US-BAYER-200840840NA

PATIENT
  Sex: Female
  Weight: 108 kg

DRUGS (8)
  1. NEXAVAR [Suspect]
     Indication: METASTATIC RENAL CELL CARCINOMA
     Dosage: TOTAL DAILY DOSE: 400 MG  UNIT DOSE: 200 MG
     Route: 048
     Dates: start: 20080901, end: 20080925
  2. NEXAVAR [Suspect]
     Dosage: TOTAL DAILY DOSE: 800 MG  UNIT DOSE: 200 MG
     Route: 048
     Dates: start: 20080925, end: 20081029
  3. SUTENT [Suspect]
     Indication: METASTATIC RENAL CELL CARCINOMA
     Dosage: TOTAL DAILY DOSE: 50 MG
     Dates: start: 20080612, end: 20080824
  4. CHLORTHALIDONE [Concomitant]
  5. HYDROCHLOROTHIAZIDE [Concomitant]
     Dosage: TOTAL DAILY DOSE: 25 MG
  6. TYLENOL (CAPLET) [Concomitant]
  7. AVAPRO [Concomitant]
     Dosage: TOTAL DAILY DOSE: 30 MG
  8. GLUCOSAMINE CHONDROITIN COMPLEX [Concomitant]

REACTIONS (2)
  - ASTHENIA [None]
  - GAIT DISTURBANCE [None]
